FAERS Safety Report 5310112-6 (Version None)
Quarter: 2007Q2

REPORT INFORMATION
  Report Type: 
  Country: None (occurrence: None)
  Receive Date: 20070427
  Receipt Date: 20070419
  Transmission Date: 20071010
  Serious: Yes (Life-Threatening)
  Sender: FDA-Public Use
  Company Number: DE-MERCK-0704DEU00063

PATIENT
  Age: 43 Year
  Sex: Male
  Weight: 100 kg

DRUGS (6)
  1. CANCIDAS [Suspect]
     Indication: CANDIDA PNEUMONIA
     Route: 042
     Dates: start: 20070103
  2. PANTOPRAZOLE [Concomitant]
     Indication: PROPHYLAXIS AGAINST GASTROINTESTINAL ULCER
     Route: 042
     Dates: start: 20061122
  3. LORAZEPAM [Concomitant]
     Indication: SEDATION
     Route: 048
     Dates: start: 20061201
  4. HEPARIN [Concomitant]
     Indication: HAEMODIALYSIS
     Route: 065
     Dates: start: 20061122
  5. HEPARIN [Concomitant]
     Indication: THROMBOSIS PROPHYLAXIS
     Route: 065
     Dates: start: 20061122
  6. MORPHINE [Concomitant]
     Indication: LIFE SUPPORT
     Route: 065
     Dates: start: 20061122

REACTIONS (1)
  - ENCEPHALITIS [None]
